FAERS Safety Report 9486653 (Version 2)
Quarter: 2013Q3

REPORT INFORMATION
  Report Type: Spontaneous
  Country: FR (occurrence: FR)
  Receive Date: 20130829
  Receipt Date: 20130902
  Transmission Date: 20140515
  Serious: Yes (Hospitalization)
  Sender: FDA-Public Use
  Company Number: FR-SANOFI-AVENTIS-2013SA083863

PATIENT
  Age: 80 Year
  Sex: Female

DRUGS (11)
  1. LASILIX [Suspect]
     Indication: HYPERTENSION
     Route: 048
  2. TIAPRIDAL [Suspect]
     Indication: AGITATION
     Route: 048
     Dates: start: 20130629, end: 20130703
  3. TIAPRIDAL [Suspect]
     Indication: AGITATION
     Route: 048
     Dates: start: 20130703, end: 20130704
  4. TIAPRIDAL [Suspect]
     Indication: AGITATION
     Route: 065
     Dates: start: 20130710, end: 20130713
  5. IMOVANE [Suspect]
     Indication: PRODUCT USED FOR UNKNOWN INDICATION
     Route: 048
     Dates: start: 20130705
  6. ATARAX [Suspect]
     Indication: AGITATION
     Route: 048
     Dates: start: 20130704, end: 20130710
  7. ATARAX [Suspect]
     Indication: AGITATION
     Route: 065
     Dates: start: 20130710, end: 20130713
  8. NORSET [Suspect]
     Indication: PRODUCT USED FOR UNKNOWN INDICATION
     Route: 048
     Dates: start: 20130710
  9. TERBUTALINE [Suspect]
     Indication: PRODUCT USED FOR UNKNOWN INDICATION
     Route: 055
     Dates: start: 20130628, end: 20130711
  10. IPRATROPIUM [Suspect]
     Indication: PRODUCT USED FOR UNKNOWN INDICATION
     Route: 055
     Dates: start: 20130628, end: 20130711
  11. PYOSTACINE [Concomitant]

REACTIONS (2)
  - Confusional state [Not Recovered/Not Resolved]
  - Abnormal behaviour [Not Recovered/Not Resolved]
